FAERS Safety Report 13302732 (Version 1)
Quarter: 2017Q1

REPORT INFORMATION
  Report Type: Spontaneous
  Country: US (occurrence: US)
  Receive Date: 20170307
  Receipt Date: 20170307
  Transmission Date: 20170428
  Serious: Yes (Death, Other)
  Sender: FDA-Public Use
  Company Number: US-009507513-1702USA011913

PATIENT

DRUGS (2)
  1. PROPECIA [Suspect]
     Active Substance: FINASTERIDE
     Indication: ANDROGENETIC ALOPECIA
     Dosage: UNK
     Route: 048
  2. PROSCAR [Suspect]
     Active Substance: FINASTERIDE
     Indication: PROSTATOMEGALY
     Route: 048

REACTIONS (13)
  - Mood swings [Unknown]
  - Partner stress [Unknown]
  - Sperm concentration decreased [Unknown]
  - Prostate cancer [Unknown]
  - Libido decreased [Not Recovered/Not Resolved]
  - Ejaculation disorder [Not Recovered/Not Resolved]
  - Orgasm abnormal [Not Recovered/Not Resolved]
  - Completed suicide [Fatal]
  - Erectile dysfunction [Unknown]
  - Breast cancer male [Unknown]
  - Testis cancer [Unknown]
  - Sexual dysfunction [Unknown]
  - Amnesia [Unknown]
